FAERS Safety Report 6925008-3 (Version None)
Quarter: 2010Q3

REPORT INFORMATION
  Report Type: 
  Country: None (occurrence: None)
  Receive Date: 20100810
  Receipt Date: 20100728
  Transmission Date: 20110219
  Serious: Yes (Other)
  Sender: FDA-Public Use
  Company Number: DSU-2010-03762

PATIENT
  Age: 56 Year
  Sex: Male
  Weight: 68.0396 kg

DRUGS (4)
  1. BENICAR HCT [Suspect]
     Indication: HYPERTENSION
     Dosage: 40/25MG (QD), PER ORAL; 20/12.5MG (1/2 (40/25MG) TABLET QD), PER ORAL
     Route: 048
     Dates: start: 20060101, end: 20080101
  2. BENICAR HCT [Suspect]
     Indication: HYPERTENSION
     Dosage: 40/25MG (QD), PER ORAL; 20/12.5MG (1/2 (40/25MG) TABLET QD), PER ORAL
     Route: 048
     Dates: start: 20080101
  3. HYDROXYCHLOROQUINE (HYDROXYCHLOROQUINE) (HYDROXYCHLOROQUINE) [Concomitant]
  4. VITAMIN D (ERGOCALCIFEROL) (ERGOCALCIFEROL) [Concomitant]

REACTIONS (5)
  - ARTHRALGIA [None]
  - COELIAC DISEASE [None]
  - DIARRHOEA [None]
  - DRUG ADMINISTRATION ERROR [None]
  - WEIGHT DECREASED [None]
